FAERS Safety Report 6851899-0 (Version None)
Quarter: 2010Q3

REPORT INFORMATION
  Report Type: 
  Country: None (occurrence: None)
  Receive Date: 20100717
  Receipt Date: 20100504
  Transmission Date: 20110219
  Serious: No
  Sender: FDA-Public Use
  Company Number: US-PFIZER INC-2008005396

PATIENT
  Age: 56 Year
  Sex: Female
  Weight: 72.562 kg

DRUGS (12)
  1. CHANTIX [Suspect]
     Indication: SMOKING CESSATION THERAPY
     Dosage: 1 MG, 1X/DAY
     Route: 048
  2. CHANTIX [Suspect]
     Dosage: UNK
     Dates: start: 20100504
  3. SALBUTAMOL W/IPRATROPIUM [Concomitant]
     Dosage: UNK
  4. SPIRIVA [Concomitant]
     Dosage: UNK
  5. ADVAIR DISKUS 100/50 [Concomitant]
     Dosage: UNK
  6. PERCOCET [Concomitant]
     Dosage: UNK
  7. AMBIEN [Concomitant]
     Dosage: UNK
  8. FLEXERIL [Concomitant]
     Dosage: UNK
  9. MONTELUKAST SODIUM [Concomitant]
     Dosage: UNK
  10. LEXAPRO [Concomitant]
     Dosage: UNK
  11. LORAZEPAM [Concomitant]
     Dosage: UNK
  12. COMBIVENT [Concomitant]
     Dosage: UNK

REACTIONS (10)
  - ABNORMAL DREAMS [None]
  - ASTHENIA [None]
  - DRUG EFFECT DECREASED [None]
  - DYSPNOEA [None]
  - MALAISE [None]
  - MIDDLE INSOMNIA [None]
  - NAUSEA [None]
  - SOMNOLENCE [None]
  - THIRST [None]
  - VOMITING [None]
